FAERS Safety Report 5132950-5 (Version None)
Quarter: 2006Q4

REPORT INFORMATION
  Report Type: 
  Country: None (occurrence: None)
  Receive Date: 20061019
  Receipt Date: 20061019
  Transmission Date: 20070319
  Serious: Yes (Hospitalization)
  Sender: FDA-Public Use
  Company Number: None

PATIENT
  Age: 64 Year
  Sex: Male
  Weight: 109.8 kg

DRUGS (12)
  1. CEPHALEXIN [Suspect]
  2. GLIPIZIDE [Concomitant]
  3. SIMVASTATIN [Concomitant]
  4. CARVEDILOL [Concomitant]
  5. FUROSEMIDE [Concomitant]
  6. LANOXIN [Concomitant]
  7. MORPHINE SULFATE [Concomitant]
  8. DIPHENHYDRAMINE HCL [Concomitant]
  9. HYDROCORTISONE ACETATE [Concomitant]
  10. ALPRAZOLAM [Concomitant]
  11. INSULIN REG HUMAN 100 UNIT/ML NOVOLIN R [Concomitant]
  12. COUMADIN [Concomitant]

REACTIONS (2)
  - PRURITUS [None]
  - SWELLING [None]
